FAERS Safety Report 6888131-8 (Version None)
Quarter: 2010Q3

REPORT INFORMATION
  Report Type: 
  Country: None (occurrence: None)
  Receive Date: 20100727
  Receipt Date: 20100712
  Transmission Date: 20110219
  Serious: Yes (Hospitalization)
  Sender: FDA-Public Use
  Company Number: S07-UKI-06288-01

PATIENT
  Age: 84 Year
  Sex: Female

DRUGS (19)
  1. CITALOPRAM HYDROBROMIDE [Suspect]
     Indication: DEPRESSION
     Dosage: 10 MG (10  MG, 1 IN 1 D), ORAL
     Route: 048
     Dates: start: 20070924, end: 20071019
  2. ASPIRIN [Concomitant]
  3. CHLORPHENAMINE (CHLORPHENAMINE) (CHLORPHENAMINE) [Concomitant]
  4. CLOTRIMAZOLE (CLOTRIMAZOLE) (CLOTRIMAZOLE) [Concomitant]
  5. DIAZEPAM [Concomitant]
  6. EURAX (CROTAMITON/HYDROCORTISONE) (10 PERCENT) [Concomitant]
  7. IBUPROFEN [Concomitant]
  8. LACTULOSE (LACTULOSE) (LACTULOSE) [Concomitant]
  9. LANSOPRAZOLE [Concomitant]
  10. LOPERAMIDE (LOPERAMIDE) (LOPERAMIDE) [Concomitant]
  11. NULYTELY [Concomitant]
  12. OXYBUTYNIN (OXYBUTYNIN) (OXYBUTYNIN) [Concomitant]
  13. PARACETAMOL (PARACETAMOL) (PARACETAMOL) [Concomitant]
  14. SIMVASTATIN [Concomitant]
  15. SUDOCREM (400 GRAM) [Concomitant]
  16. TEMAZEPAM [Concomitant]
  17. TOPAL [Concomitant]
  18. SALIVIX [Concomitant]
  19. PERNATON GREEN LIPPED KUSSEL EXTRACT [Concomitant]

REACTIONS (2)
  - CHOREA [None]
  - DYSKINESIA [None]
